FAERS Safety Report 6165565-0 (Version None)
Quarter: 2009Q2

REPORT INFORMATION
  Report Type: 
  Country: None (occurrence: None)
  Receive Date: 20090423
  Receipt Date: 20090422
  Transmission Date: 20091009
  Serious: Yes (Hospitalization)
  Sender: FDA-Public Use
  Company Number: US-B.I. PHARMACEUTICALS,INC./RIDGEFIELD-2009-BP-02722BP

PATIENT
  Age: 75 Year
  Sex: Female

DRUGS (14)
  1. COMBIVENT [Suspect]
     Indication: CHRONIC OBSTRUCTIVE PULMONARY DISEASE
     Dosage: 1PUF
     Route: 055
     Dates: start: 20060101
  2. COMBIVENT [Suspect]
     Indication: DYSPNOEA
  3. SYNTHROID [Concomitant]
     Indication: THYROID DISORDER
     Dosage: 50MG
     Route: 048
  4. RESTORIL [Concomitant]
     Indication: INSOMNIA
     Route: 048
  5. ATIVAN [Concomitant]
     Indication: ANXIETY
     Dosage: 1MG
     Route: 048
  6. ATIVAN [Concomitant]
     Dosage: 1MG
     Route: 048
  7. DYAZIDE [Concomitant]
     Indication: HYPERTENSION
     Route: 048
  8. NORVASC [Concomitant]
     Indication: HYPERTENSION
     Dosage: 10MG
     Route: 048
  9. NEXIUM [Concomitant]
     Indication: GASTROINTESTINAL DISORDER
     Dosage: 40MG
     Route: 048
  10. LEXAPRO [Concomitant]
     Indication: DEPRESSION
     Dosage: 10MG
     Route: 048
  11. LASIX [Concomitant]
  12. LIPITOR [Concomitant]
  13. BIAXIN [Concomitant]
  14. SPIRIVA [Concomitant]

REACTIONS (2)
  - COLON CANCER [None]
  - LUNG INFECTION [None]
